FAERS Safety Report 6230120-0 (Version None)
Quarter: 2009Q2

REPORT INFORMATION
  Report Type: 
  Country: None (occurrence: None)
  Receive Date: 20090615
  Receipt Date: 20090603
  Transmission Date: 20091009
  Serious: Yes (Hospitalization)
  Sender: FDA-Public Use
  Company Number: US-GENENTECH-282141

PATIENT
  Sex: Male
  Weight: 78 kg

DRUGS (3)
  1. RITUXIMAB [Suspect]
     Indication: NON-HODGKIN'S LYMPHOMA
     Dosage: 375 MG/M2, UNK
     Route: 042
     Dates: start: 20081204
  2. VELCADE [Suspect]
     Indication: B-CELL LYMPHOMA
     Dosage: 1.6 MG/M2, UNK
     Route: 042
     Dates: start: 20081204
  3. TREANDA [Suspect]
     Indication: B-CELL LYMPHOMA
     Dosage: 90 MG/M2, UNK
     Route: 042
     Dates: start: 20081204

REACTIONS (1)
  - FEBRILE NEUTROPENIA [None]
